FAERS Safety Report 13947478 (Version 3)
Quarter: 2018Q3

REPORT INFORMATION
  Report Type: Report from Study
  Country: US (occurrence: US)
  Receive Date: 20170908
  Receipt Date: 20180917
  Transmission Date: 20181010
  Serious: Yes (Hospitalization)
  Sender: FDA-Public Use
  Company Number: US-SUN PHARMACEUTICAL INDUSTRIES LTD-2017US-149366

PATIENT
  Age: 85 Year
  Sex: Female
  Weight: 91.4 kg

DRUGS (3)
  1. AZACITIDINE COMP?AZAC+ [Suspect]
     Active Substance: AZACITIDINE
     Indication: NEOPLASM MALIGNANT
     Dosage: 75 MG/M2, QD
     Route: 058
     Dates: start: 20150824, end: 20150828
  2. DACOGEN [Concomitant]
     Active Substance: DECITABINE
     Indication: PRODUCT USED FOR UNKNOWN INDICATION
     Dosage: UNK
     Route: 065
  3. SONIDEGIB [Suspect]
     Active Substance: SONIDEGIB
     Indication: NEOPLASM MALIGNANT
     Dosage: 800 MG, QD (DAYS 1 TO 28)
     Route: 048
     Dates: start: 20150824, end: 20150828

REACTIONS (2)
  - Lung infection [Recovering/Resolving]
  - Atrioventricular block complete [Recovering/Resolving]

NARRATIVE: CASE EVENT DATE: 20150829
